FAERS Safety Report 20119721 (Version 6)
Quarter: 2022Q1

REPORT INFORMATION
  Report Type: Report from Study
  Country: MX (occurrence: MX)
  Receive Date: 20211126
  Receipt Date: 20220311
  Transmission Date: 20220423
  Serious: Yes (Other)
  Sender: FDA-Public Use
  Company Number: MX-NOVARTISPH-NVSC2021MX270650

PATIENT
  Sex: Female
  Weight: 78 kg

DRUGS (4)
  1. ELTROMBOPAG OLAMINE [Suspect]
     Active Substance: ELTROMBOPAG OLAMINE
     Indication: Thrombocytopenic purpura
     Dosage: 1 DOSAGE FORM (50 MG), QD
     Route: 048
     Dates: start: 2018
  2. ELTROMBOPAG OLAMINE [Suspect]
     Active Substance: ELTROMBOPAG OLAMINE
     Dosage: 1 DF, Q48H (50 MG) (STARTED IN SEP OR OCT)
     Route: 048
     Dates: start: 2019, end: 20220106
  3. ELTROMBOPAG OLAMINE [Suspect]
     Active Substance: ELTROMBOPAG OLAMINE
     Dosage: 1 DOSAGE FORM (50 MG), QD
     Route: 048
     Dates: start: 202003
  4. ELTROMBOPAG OLAMINE [Suspect]
     Active Substance: ELTROMBOPAG OLAMINE
     Dosage: 1 DOSAGE FORM (50 MG), Q72H
     Route: 048
     Dates: start: 20220117

REACTIONS (14)
  - Retinal detachment [Recovered/Resolved with Sequelae]
  - Visual impairment [Not Recovered/Not Resolved]
  - Glaucoma [Not Recovered/Not Resolved]
  - Acidosis [Not Recovered/Not Resolved]
  - Irritability [Not Recovered/Not Resolved]
  - Pain [Unknown]
  - COVID-19 [Recovered/Resolved]
  - Pharyngeal swelling [Unknown]
  - Throat irritation [Unknown]
  - Cough [Unknown]
  - Pyrexia [Unknown]
  - Eye disorder [Unknown]
  - Dry eye [Unknown]
  - Off label use [Not Recovered/Not Resolved]

NARRATIVE: CASE EVENT DATE: 20180101
